FAERS Safety Report 6273105-0 (Version None)
Quarter: 2009Q3

REPORT INFORMATION
  Report Type: 
  Country: None (occurrence: None)
  Receive Date: 20090715
  Receipt Date: 20090715
  Transmission Date: 20100115
  Serious: Yes (Other)
  Sender: FDA-Public Use
  Company Number: None

PATIENT
  Age: 32 Year
  Sex: Female
  Weight: 84.8226 kg

DRUGS (1)
  1. KENALOG-40 [Suspect]
     Indication: PAIN IN EXTREMITY
     Dosage: 40ML 1 OTHER
     Route: 050
     Dates: start: 20090605, end: 20090605

REACTIONS (5)
  - BACK PAIN [None]
  - FLUID RETENTION [None]
  - MENORRHAGIA [None]
  - POST PROCEDURAL HAEMORRHAGE [None]
  - THROMBOSIS [None]
